FAERS Safety Report 10872626 (Version 1)
Quarter: 2015Q1

REPORT INFORMATION
  Report Type: Spontaneous
  Country: US (occurrence: US)
  Receive Date: 20150227
  Receipt Date: 20150227
  Transmission Date: 20150721
  Serious: No
  Sender: FDA-Public Use
  Company Number: US-009507513-1502USA009465

PATIENT
  Sex: Female

DRUGS (2)
  1. NUVARING [Suspect]
     Active Substance: ETHINYL ESTRADIOL\ETONOGESTREL
     Dosage: STRENGTH 0.015/0.12 UNITS UNSPECIFIED
     Route: 067
  2. NUVARING [Suspect]
     Active Substance: ETHINYL ESTRADIOL\ETONOGESTREL
     Dosage: 2 DF (STRENGTH 0.015/0.12 UNITS UNSPECIFIED), UNK
     Route: 067
     Dates: start: 201502, end: 201502

REACTIONS (4)
  - Withdrawal bleed [Unknown]
  - Accidental overdose [Unknown]
  - Medication error [Unknown]
  - No adverse event [Unknown]

NARRATIVE: CASE EVENT DATE: 201502
